FAERS Safety Report 9551253 (Version 2)
Quarter: 2013Q4

REPORT INFORMATION
  Report Type: Spontaneous
  Country: FR (occurrence: FR)
  Receive Date: 20130925
  Receipt Date: 20131022
  Transmission Date: 20140711
  Serious: Yes (Hospitalization)
  Sender: FDA-Public Use
  Company Number: FR-ROCHE-1280374

PATIENT
  Age: 66 Year
  Sex: Male

DRUGS (6)
  1. XELODA [Suspect]
     Indication: RECTAL CANCER
     Route: 048
     Dates: start: 20130617, end: 20130622
  2. AERIUS [Concomitant]
  3. SERETIDE [Concomitant]
  4. NASACORT [Concomitant]
  5. AVLOCARDYL [Concomitant]
  6. ZOMIG [Concomitant]

REACTIONS (1)
  - Eosinophilia [Recovered/Resolved]
